FAERS Safety Report 23507872 (Version 1)
Quarter: 2024Q1

REPORT INFORMATION
  Report Type: Spontaneous
  Country: US (occurrence: None)
  Receive Date: 20240209
  Receipt Date: 20240209
  Transmission Date: 20240410
  Serious: Yes (Other)
  Sender: FDA-Public Use
  Company Number: None

PATIENT
  Age: 60 Year
  Sex: Male
  Weight: 90 kg

DRUGS (9)
  1. KENALOG [Suspect]
     Active Substance: TRIAMCINOLONE ACETONIDE
     Indication: Meniscus injury
     Dosage: FREQUENCY : ONCE;?OTHER ROUTE : BETWEEN THE BONES OF THE KNEE;?
     Route: 050
     Dates: start: 20240122, end: 20240122
  2. CHLORPROMAZINE [Suspect]
     Active Substance: CHLORPROMAZINE
     Indication: Hiccups
     Dosage: FREQUENCY : EVERY 12 HOURS;?
     Route: 048
     Dates: start: 20240124, end: 20240204
  3. OZEMPIC [Concomitant]
     Active Substance: SEMAGLUTIDE
  4. METFORMIN HYDROCHLORIDE [Concomitant]
     Active Substance: METFORMIN HYDROCHLORIDE
  5. ROSUVASTATIN [Concomitant]
     Active Substance: ROSUVASTATIN
  6. ESCITALOPRAM [Concomitant]
     Active Substance: ESCITALOPRAM OXALATE
  7. TESTOSTERONE CYPIONATE [Concomitant]
     Active Substance: TESTOSTERONE CYPIONATE
  8. VALACYCLOVIR [Concomitant]
     Active Substance: VALACYCLOVIR HYDROCHLORIDE
  9. LORATADINE [Concomitant]
     Active Substance: LORATADINE

REACTIONS (9)
  - Blood glucose increased [None]
  - Hiccups [None]
  - Dyspnoea [None]
  - Palpitations [None]
  - Pain [None]
  - Fatigue [None]
  - Hunger [None]
  - Epigastric discomfort [None]
  - Therapy cessation [None]

NARRATIVE: CASE EVENT DATE: 20240122
